FAERS Safety Report 7410057-1 (Version None)
Quarter: 2011Q2

REPORT INFORMATION
  Report Type: 
  Country: None (occurrence: None)
  Receive Date: 20110412
  Receipt Date: 20110404
  Transmission Date: 20111010
  Serious: Yes (Other)
  Sender: FDA-Public Use
  Company Number: IE-AMGEN-IRLSP2011007855

PATIENT
  Age: 74 Year
  Sex: Female

DRUGS (8)
  1. NU-SEALS ASPIRIN [Concomitant]
  2. NEULASTA [Suspect]
     Indication: CHEMOTHERAPY
     Dosage: 6 MG, 3 TIMES/WK
     Route: 058
     Dates: start: 20110120, end: 20110120
  3. DEXAMETHASONE [Concomitant]
  4. MOTILIUM                           /00498201/ [Concomitant]
  5. DICLOFENAC [Concomitant]
  6. FUROSEMIDE [Concomitant]
  7. ZOFRAN [Concomitant]
  8. CARDURA [Concomitant]

REACTIONS (2)
  - BONE PAIN [None]
  - DIARRHOEA [None]
